FAERS Safety Report 7244888-8 (Version None)
Quarter: 2011Q1

REPORT INFORMATION
  Report Type: 
  Country: None (occurrence: None)
  Receive Date: 20110126
  Receipt Date: 20110118
  Transmission Date: 20110831
  Serious: Yes (Hospitalization, Other)
  Sender: FDA-Public Use
  Company Number: JP-PFIZER INC-2010175090

PATIENT
  Age: 83 Year
  Sex: Female

DRUGS (7)
  1. CORTRIL [Concomitant]
     Dosage: 10 MG, 2X/DAY
     Route: 048
  2. THYRADIN S [Concomitant]
     Indication: HYPOTHYROIDISM
     Dosage: 50 UG, 1X/DAY
     Route: 048
  3. GASTER [Concomitant]
     Indication: GASTRITIS
     Dosage: 20 MG, 1X/DAY
     Route: 048
  4. IMIDAFENACIN [Concomitant]
     Indication: POLLAKIURIA
     Dosage: 0.1 MG, 1X/DAY
     Route: 048
  5. MUCOSTA [Concomitant]
     Indication: GASTRITIS
     Dosage: 100 MG, 3X/DAY
     Route: 048
  6. LYRICA [Suspect]
     Indication: NEURALGIA
     Dosage: 150 MG/DAY
     Route: 048
     Dates: start: 20101202, end: 20101204
  7. MYSLEE [Concomitant]
     Indication: INSOMNIA
     Dosage: 10 MG, 1X/DAY
     Route: 048

REACTIONS (10)
  - MOVEMENT DISORDER [None]
  - DECREASED APPETITE [None]
  - HYPOGLYCAEMIA [None]
  - ABNORMAL BEHAVIOUR [None]
  - WHITE BLOOD CELL COUNT INCREASED [None]
  - BLOOD UREA INCREASED [None]
  - DIZZINESS [None]
  - BLOOD ALKALINE PHOSPHATASE INCREASED [None]
  - SOMNOLENCE [None]
  - C-REACTIVE PROTEIN INCREASED [None]
